FAERS Safety Report 20059307 (Version 2)
Quarter: 2022Q1

REPORT INFORMATION
  Report Type: Spontaneous
  Country: US (occurrence: US)
  Receive Date: 20211111
  Receipt Date: 20220121
  Transmission Date: 20220423
  Serious: Yes (Hospitalization, Other)
  Sender: FDA-Public Use
  Company Number: US-ASTELLAS-2021US042671

PATIENT
  Age: 69 Year
  Sex: Male

DRUGS (2)
  1. PADCEV [Suspect]
     Active Substance: ENFORTUMAB VEDOTIN-EJFV
     Indication: Bladder cancer
     Dosage: 125 MG, CYCLIC (D1, D8, D15 EVERY (Q) 28)
     Route: 065
     Dates: start: 20210827, end: 20211015
  2. PADCEV [Suspect]
     Active Substance: ENFORTUMAB VEDOTIN-EJFV
     Dosage: UNK UNK, CYCLIC
     Route: 065
     Dates: start: 20211105

REACTIONS (4)
  - Peripheral swelling [Recovered/Resolved]
  - Eczema [Recovered/Resolved]
  - Rash [Unknown]
  - Cellulitis [Unknown]

NARRATIVE: CASE EVENT DATE: 20211015
